FAERS Safety Report 15583652 (Version 1)
Quarter: 2018Q4

REPORT INFORMATION
  Report Type: Spontaneous
  Country: US (occurrence: US)
  Receive Date: 20181031
  Receipt Date: 20181031
  Transmission Date: 20190205
  Serious: Yes (Death)
  Sender: FDA-Public Use
  Company Number: None

PATIENT
  Age: 87 Year
  Sex: Female

DRUGS (8)
  1. IRBESARTAN. [Concomitant]
     Active Substance: IRBESARTAN
  2. EZETIMIBE. [Concomitant]
     Active Substance: EZETIMIBE
  3. ATORVASTATIN [Concomitant]
     Active Substance: ATORVASTATIN
  4. PROLIA [Concomitant]
     Active Substance: DENOSUMAB
  5. METOPROLOL. [Concomitant]
     Active Substance: METOPROLOL
  6. IBRANCE [Suspect]
     Active Substance: PALBOCICLIB
     Indication: BREAST CANCER
     Dosage: QD X21 DAYS, OFF 7, PO?
     Route: 048
     Dates: start: 20180731, end: 20181009
  7. LETROZOLE. [Concomitant]
     Active Substance: LETROZOLE
  8. LEVOTHYROXINE. [Concomitant]
     Active Substance: LEVOTHYROXINE

REACTIONS (3)
  - Renal failure [None]
  - Pulmonary oedema [None]
  - Hepatic failure [None]

NARRATIVE: CASE EVENT DATE: 20181009
